FAERS Safety Report 6303273-3 (Version None)
Quarter: 2009Q3

REPORT INFORMATION
  Report Type: 
  Country: None (occurrence: None)
  Receive Date: 20090810
  Receipt Date: 20090419
  Transmission Date: 20100115
  Serious: No
  Sender: FDA-Public Use
  Company Number: A0780789A

PATIENT
  Sex: Male

DRUGS (2)
  1. PAXIL [Suspect]
     Indication: DRUG USE FOR UNKNOWN INDICATION
     Dosage: 20MG UNKNOWN
     Route: 048
     Dates: start: 20080820
  2. CLARITIN [Suspect]
     Indication: MULTIPLE ALLERGIES
     Dosage: 1TAB UNKNOWN
     Route: 048
     Dates: start: 20090401

REACTIONS (3)
  - DRUG INTERACTION [None]
  - INSOMNIA [None]
  - SLEEP DISORDER [None]
